FAERS Safety Report 16966262 (Version 11)
Quarter: 2025Q3

REPORT INFORMATION
  Report Type: Spontaneous
  Country: US (occurrence: US)
  Receive Date: 20191028
  Receipt Date: 20250722
  Transmission Date: 20251021
  Serious: No
  Sender: PFIZER
  Company Number: US-PFIZER INC-2019465233

PATIENT
  Age: 77 Year
  Sex: Female
  Weight: 61.224 kg

DRUGS (3)
  1. IBRANCE [Suspect]
     Active Substance: PALBOCICLIB
     Indication: Breast cancer female
     Route: 048
     Dates: start: 201510
  2. IBRANCE [Suspect]
     Active Substance: PALBOCICLIB
     Indication: Back pain
     Route: 048
  3. LETROZOLE [Concomitant]
     Active Substance: LETROZOLE
     Dates: start: 2015

REACTIONS (2)
  - White blood cell count abnormal [Not Recovered/Not Resolved]
  - Full blood count abnormal [Unknown]

NARRATIVE: CASE EVENT DATE: 20151001
